FAERS Safety Report 7575002-7 (Version None)
Quarter: 2011Q2

REPORT INFORMATION
  Report Type: 
  Country: None (occurrence: None)
  Receive Date: 20110627
  Receipt Date: 20110616
  Transmission Date: 20111010
  Serious: No
  Sender: FDA-Public Use
  Company Number: BR-BAYER-2011-049315

PATIENT
  Age: 45 Year
  Sex: Female
  Weight: 59 kg

DRUGS (3)
  1. YAZ [Suspect]
     Indication: CONTRACEPTION
  2. YAZ [Suspect]
     Indication: OVARIAN CYST
     Dosage: 1 DF, QD
     Route: 048
     Dates: start: 20100901
  3. YAZ [Suspect]
     Indication: VAGINAL HAEMORRHAGE
     Dosage: 1 DF, QD
     Route: 048

REACTIONS (5)
  - HEADACHE [None]
  - UTERINE DISORDER [None]
  - ABDOMINAL DISTENSION [None]
  - DYSMENORRHOEA [None]
  - SENSATION OF HEAVINESS [None]
